FAERS Safety Report 5000197-9 (Version None)
Quarter: 2006Q1

REPORT INFORMATION
  Report Type: 
  Country: None (occurrence: None)
  Receive Date: 20060315
  Receipt Date: 20060215
  Transmission Date: 20060701
  Serious: Yes (Other)
  Sender: FDA-Public Use
  Company Number: 436938

PATIENT
  Sex: Female

DRUGS (6)
  1. BONIVA [Suspect]
     Dosage: ORAL
     Route: 048
     Dates: start: 20051215
  2. VERAPAMIL [Concomitant]
  3. PREMARIN [Concomitant]
  4. KLONOPIN [Concomitant]
  5. MULTIVITAMIN [Concomitant]
  6. CALCIUM SUPPLEMENT (CALCIUM) [Concomitant]

REACTIONS (3)
  - CHAPPED LIPS [None]
  - LIP PAIN [None]
  - SWELLING FACE [None]
